FAERS Safety Report 12895296 (Version 2)
Quarter: 2016Q4

REPORT INFORMATION
  Report Type: Spontaneous
  Country: CN (occurrence: CN)
  Receive Date: 20161030
  Receipt Date: 20161106
  Transmission Date: 20170207
  Serious: Yes (Hospitalization, Other)
  Sender: FDA-Public Use
  Company Number: CN-ASTRAZENECA-2016SF07301

PATIENT
  Sex: Male

DRUGS (7)
  1. BETALOC [Suspect]
     Active Substance: METOPROLOL TARTRATE
     Indication: MYOCARDIAL INFARCTION
     Route: 048
     Dates: end: 20161006
  2. BETALOC ZOK [Suspect]
     Active Substance: METOPROLOL SUCCINATE
     Route: 048
     Dates: start: 20161006, end: 20161008
  3. BETALOC [Suspect]
     Active Substance: METOPROLOL TARTRATE
     Indication: HYPERTENSION
     Route: 048
     Dates: start: 20161008
  4. BETALOC [Suspect]
     Active Substance: METOPROLOL TARTRATE
     Indication: HYPERTENSION
     Route: 048
     Dates: end: 20161006
  5. INDAPAMIDE. [Concomitant]
     Active Substance: INDAPAMIDE
     Indication: BLOOD PRESSURE INADEQUATELY CONTROLLED
     Dates: start: 20161002, end: 201610
  6. DIGOXIN. [Concomitant]
     Active Substance: DIGOXIN
     Route: 048
  7. BETALOC [Suspect]
     Active Substance: METOPROLOL TARTRATE
     Indication: MYOCARDIAL INFARCTION
     Route: 048
     Dates: start: 20161008

REACTIONS (6)
  - Coronary artery disease [Unknown]
  - Blood pressure inadequately controlled [Unknown]
  - Cerebral infarction [Unknown]
  - Laryngeal oedema [Recovering/Resolving]
  - Arrhythmia [Unknown]
  - Face oedema [Unknown]

NARRATIVE: CASE EVENT DATE: 20160930
